FAERS Safety Report 4494488-8 (Version None)
Quarter: 2004Q4

REPORT INFORMATION
  Report Type: 
  Country: None (occurrence: None)
  Receive Date: 20041102
  Receipt Date: 20041021
  Transmission Date: 20050328
  Serious: Yes (Life-Threatening, Hospitalization)
  Sender: FDA-Public Use
  Company Number: 2004081187

PATIENT
  Age: 39 Year
  Sex: Female

DRUGS (3)
  1. ATARAX [Suspect]
     Indication: PRURITUS
     Dosage: ORAL
     Route: 048
     Dates: start: 19980225, end: 20010408
  2. CLONAZEPAM [Concomitant]
  3. CARBAMAZEPINE [Concomitant]

REACTIONS (8)
  - ASTHENIA [None]
  - DIZZINESS [None]
  - EYE PAIN [None]
  - FATIGUE [None]
  - FEELING ABNORMAL [None]
  - HEADACHE [None]
  - RENAL ARTERY STENOSIS [None]
  - RENAL NECROSIS [None]
